FAERS Safety Report 13943933 (Version 1)
Quarter: 2017Q3

REPORT INFORMATION
  Report Type: Spontaneous
  Country: None (occurrence: DE)
  Receive Date: 20170907
  Receipt Date: 20170907
  Transmission Date: 20171128
  Serious: Yes (Other)
  Sender: FDA-Public Use
  Company Number: DE-AUROBINDO-AUR-APL-2012-02646

PATIENT
  Sex: Female
  Weight: 66 kg

DRUGS (3)
  1. FLUVASTATIN [Suspect]
     Active Substance: FLUVASTATIN SODIUM
     Indication: LOW DENSITY LIPOPROTEIN INCREASED
     Dosage: UNK
     Route: 048
     Dates: start: 201007, end: 201112
  2. TREDAPTIVE [Suspect]
     Active Substance: LAROPIPRANT\NICOTINIC ACID HYDRAZIDE
     Indication: LIPOPROTEIN (A) INCREASED
     Dosage: UNK UNK,UNK,
     Route: 048
     Dates: start: 201104, end: 201105
  3. SIMVASTATIN. [Suspect]
     Active Substance: SIMVASTATIN
     Indication: LOW DENSITY LIPOPROTEIN INCREASED
     Dosage: UNK
     Route: 048

REACTIONS (3)
  - Skin burning sensation [Recovered/Resolved]
  - Abdominal discomfort [Recovered/Resolved]
  - Myopathy [Recovered/Resolved]
